FAERS Safety Report 5806797-8 (Version None)
Quarter: 2008Q3

REPORT INFORMATION
  Report Type: 
  Country: None (occurrence: None)
  Receive Date: 20080711
  Receipt Date: 20080630
  Transmission Date: 20090109
  Serious: Yes (Other)
  Sender: FDA-Public Use
  Company Number: PHHY2008AU12854

PATIENT

DRUGS (3)
  1. SYNTOCINON [Suspect]
     Indication: INDUCED LABOUR
  2. EFFEXOR [Concomitant]
  3. RISERIDONE [Concomitant]

REACTIONS (1)
  - CEREBRAL PALSY [None]
